FAERS Safety Report 9402446 (Version 1)
Quarter: 2013Q3

REPORT INFORMATION
  Report Type: Spontaneous
  Country: CN (occurrence: CN)
  Receive Date: 20130716
  Receipt Date: 20130716
  Transmission Date: 20140515
  Serious: Yes (Other)
  Sender: FDA-Public Use
  Company Number: CN-BAXTER-2013BAX026554

PATIENT
  Age: 69 Year
  Sex: Male
  Weight: 67 kg

DRUGS (4)
  1. 5% GLUCOSE INJECTION [Suspect]
     Indication: MEDICATION DILUTION
     Dates: start: 20111119, end: 20111119
  2. INSULIN [Suspect]
     Indication: HYPERGLYCAEMIA
     Dosage: 4 UNITS
     Route: 042
     Dates: start: 20111119, end: 20111119
  3. SHUXUENING [Suspect]
     Indication: CARDIOVASCULAR DISORDER
     Route: 042
     Dates: start: 20111119, end: 20111119
  4. VINPOCETINE [Concomitant]
     Indication: CEREBROVASCULAR INSUFFICIENCY
     Route: 042
     Dates: start: 20111119, end: 20111119

REACTIONS (1)
  - Chills [Recovered/Resolved]
